FAERS Safety Report 4597679-0 (Version None)
Quarter: 2005Q1

REPORT INFORMATION
  Report Type: 
  Country: None (occurrence: None)
  Receive Date: 20050303
  Receipt Date: 20050228
  Transmission Date: 20050727
  Serious: Yes (Death, Hospitalization)
  Sender: FDA-Public Use
  Company Number: US-JNJFOC-20041200461

PATIENT
  Age: 95 Year
  Sex: Male

DRUGS (1)
  1. REMINYL [Suspect]
     Route: 049

REACTIONS (3)
  - FALL [None]
  - HAEMORRHAGE [None]
  - HIP FRACTURE [None]
